FAERS Safety Report 6771878-1 (Version None)
Quarter: 2010Q2

REPORT INFORMATION
  Report Type: 
  Country: None (occurrence: None)
  Receive Date: 20100616
  Receipt Date: 20090903
  Transmission Date: 20101027
  Serious: No
  Sender: FDA-Public Use
  Company Number: US-ASTRAZENECA-2009SE11586

PATIENT
  Age: 48 Year
  Sex: Male
  Weight: 68 kg

DRUGS (3)
  1. ENTOCORT EC [Suspect]
     Indication: COLITIS ULCERATIVE
     Route: 048
     Dates: start: 20090819
  2. LIALDA [Concomitant]
     Indication: COLITIS ULCERATIVE
  3. PROTONIX [Concomitant]

REACTIONS (1)
  - PRODUCT TASTE ABNORMAL [None]
